FAERS Safety Report 9213461 (Version 1)
Quarter: 2013Q2

REPORT INFORMATION
  Report Type: Spontaneous
  Country: US (occurrence: None)
  Receive Date: 20130405
  Receipt Date: 20130405
  Transmission Date: 20140414
  Serious: Yes (Hospitalization)
  Sender: FDA-Public Use
  Company Number: None

PATIENT
  Age: 82 Year
  Sex: Male
  Weight: 75.3 kg

DRUGS (1)
  1. WARFARIN [Suspect]
     Dates: start: 20121212

REACTIONS (1)
  - Haemoglobin decreased [None]
